FAERS Safety Report 17263713 (Version 1)
Quarter: 2020Q1

REPORT INFORMATION
  Report Type: Spontaneous
  Country: JP (occurrence: JP)
  Receive Date: 20200113
  Receipt Date: 20200113
  Transmission Date: 20200409
  Serious: Yes (Death)
  Sender: FDA-Public Use
  Company Number: JP-JT-EVA201800729KERYXP-001

PATIENT
  Age: 81 Year
  Sex: Female
  Weight: 42 kg

DRUGS (5)
  1. NESP [Concomitant]
     Active Substance: DARBEPOETIN ALFA
     Dosage: 60 MICRO-G, UNK
     Route: 042
  2. RIONA [Suspect]
     Active Substance: FERRIC CITRATE ANHYDROUS
     Indication: HYPERPHOSPHATAEMIA
     Dosage: 750 MG, QD
     Route: 048
     Dates: start: 20160105, end: 20170510
  3. CALCITRIOL. [Concomitant]
     Active Substance: CALCITRIOL
     Indication: HYPERPARATHYROIDISM SECONDARY
     Dosage: 0.5 MICRO-G, QD
     Route: 048
  4. NESP [Concomitant]
     Active Substance: DARBEPOETIN ALFA
     Dosage: 60 MICRO-G, UNK
     Route: 042
  5. NESP [Concomitant]
     Active Substance: DARBEPOETIN ALFA
     Indication: NEPHROGENIC ANAEMIA
     Dosage: 60 MICRO-G, UNK
     Route: 042

REACTIONS (1)
  - Cerebral infarction [Fatal]

NARRATIVE: CASE EVENT DATE: 201802
